FAERS Safety Report 9484240 (Version 1)
Quarter: 2013Q3

REPORT INFORMATION
  Report Type: Spontaneous
  Country: US (occurrence: US)
  Receive Date: 20130828
  Receipt Date: 20130828
  Transmission Date: 20140515
  Serious: Yes (Other)
  Sender: FDA-Public Use
  Company Number: US-AMGEN-KDL392738

PATIENT
  Age: 63 Year
  Sex: Female
  Weight: 93.1 kg

DRUGS (24)
  1. ENBREL [Suspect]
     Indication: PRODUCT USED FOR UNKNOWN INDICATION
     Dosage: 50 MG, QWK
     Route: 058
  2. TERIPARATIDE [Concomitant]
  3. CENTRUM SILVER [Concomitant]
     Dosage: UNK UNK, UNK
     Route: 048
  4. LOMOTIL [Concomitant]
     Dosage: 2.5 MG, UNK
     Route: 048
  5. CARISOPRODOL [Concomitant]
     Dosage: 350 MG, UNK
     Route: 048
  6. PREDNISONE [Concomitant]
     Dosage: 10 MG, UNK
     Route: 048
  7. HYDROMORPHONE [Concomitant]
     Dosage: 4 MG, UNK
     Route: 048
  8. ATORVASTATIN CALCIUM [Concomitant]
     Dosage: 40 MG, UNK
     Route: 048
  9. SALBUTAMOL [Concomitant]
  10. LISINOPRIL [Concomitant]
     Dosage: 20 MG, UNK
     Route: 048
  11. FENTANYL [Concomitant]
     Dosage: 75 ?G, QH
  12. FOLIC ACID [Concomitant]
     Dosage: 1 MG, UNK
     Route: 048
  13. MESALAZINE [Concomitant]
     Dosage: 400 MG, UNK
     Route: 048
  14. FLUTICASONE/SALMETEROL [Concomitant]
  15. LEVOTHYROXINE SODIUM [Concomitant]
     Dosage: 100 ?G, UNK
     Route: 048
  16. MELOXICAM [Concomitant]
     Dosage: 15 MG, UNK
     Route: 048
  17. ERGOCALCIFEROL [Concomitant]
     Dosage: 400 IU, UNK
     Route: 048
  18. ASCORBIC ACID [Concomitant]
     Dosage: 500 MG, UNK
     Route: 048
  19. FISH OIL [Concomitant]
     Dosage: UNK UNK, UNK
     Route: 048
  20. CYANOCOBALAMIN [Concomitant]
  21. OMEGA 3 [Concomitant]
     Dosage: UNK UNK, UNK
     Route: 048
  22. POTASSIUM [Concomitant]
     Dosage: 25 MEQ, UNK
     Route: 047
  23. QVAR [Concomitant]
     Dosage: 80 ?G, UNK
     Route: 048
  24. MOXIFLOXACIN HYDROCHLORIDE [Concomitant]
     Dosage: 400 MG, UNK
     Route: 048

REACTIONS (6)
  - Diplopia [Unknown]
  - Vision blurred [Unknown]
  - Bronchitis [Unknown]
  - Productive cough [Unknown]
  - Pyrexia [Unknown]
  - Anaemia [Unknown]
